FAERS Safety Report 17166550 (Version 1)
Quarter: 2019Q4

REPORT INFORMATION
  Report Type: Report from Study
  Country: US (occurrence: US)
  Receive Date: 20191217
  Receipt Date: 20191217
  Transmission Date: 20200122
  Serious: Yes (Hospitalization)
  Sender: FDA-Public Use
  Company Number: US-EISAI MEDICAL RESEARCH-EC-2019-067146

PATIENT
  Age: 81 Year
  Sex: Female
  Weight: 83.9 kg

DRUGS (15)
  1. LENVIMA [Suspect]
     Active Substance: LENVATINIB
     Indication: OVARIAN CANCER METASTATIC
  2. LENVIMA [Suspect]
     Active Substance: LENVATINIB
     Indication: LUNG CANCER METASTATIC
  3. LENVIMA [Suspect]
     Active Substance: LENVATINIB
     Indication: METASTATIC GASTRIC CANCER
  4. THYROID [Concomitant]
     Active Substance: LEVOTHYROXINE\LIOTHYRONINE
  5. NASOCORT [Concomitant]
     Active Substance: BUDESONIDE
  6. VITAMIN K [Concomitant]
     Active Substance: PHYTONADIONE
  7. COENZYME Q10 [Concomitant]
     Active Substance: UBIDECARENONE
  8. TRELEGY ELLIPTA [Concomitant]
     Active Substance: FLUTICASONE FUROATE\UMECLIDINIUM BROMIDE\VILANTEROL TRIFENATATE
  9. CENTRUM COMPLETE [Concomitant]
  10. AMLODIPINE [Concomitant]
     Active Substance: AMLODIPINE BESYLATE
  11. VITAMIN D3 [Concomitant]
     Active Substance: CHOLECALCIFEROL
  12. ALPHA LIPOIC ACID [Concomitant]
     Active Substance: .ALPHA.-LIPOIC ACID
  13. VITAMIN B COMPLEX [Concomitant]
     Active Substance: CYANOCOBALAMIN\DEXPANTHENOL\NIACINAMIDE\PYRIDOXINE HYDROCHLORIDE\RIBOFLAVIN 5^-PHOSPHATE SODIUM\THIAMINE HYDROCHLORIDE\VITAMIN B COMPLEX
  14. LENVIMA [Suspect]
     Active Substance: LENVATINIB
     Indication: COLON CANCER METASTATIC
     Route: 048
     Dates: start: 20191206
  15. ZIAC [Concomitant]
     Active Substance: BISOPROLOL FUMARATE\HYDROCHLOROTHIAZIDE

REACTIONS (4)
  - Vomiting [Unknown]
  - Blood pressure increased [Unknown]
  - Nausea [Unknown]
  - Chills [Unknown]

NARRATIVE: CASE EVENT DATE: 201912
